FAERS Safety Report 9723024 (Version 2)
Quarter: 2014Q2

REPORT INFORMATION
  Report Type: Spontaneous
  Country: US (occurrence: None)
  Receive Date: 20131126
  Receipt Date: 20140409
  Transmission Date: 20141212
  Serious: Yes (Hospitalization)
  Sender: FDA-Public Use
  Company Number: 2013-US-003517

PATIENT
  Age: 35 Year
  Sex: Female
  Weight: 51.2 kg

DRUGS (1)
  1. XYREM [Suspect]
     Indication: PRODUCT USED FOR UNKNOWN INDICATION
     Dosage: 2.25 G, BID, ORAL
     Route: 048
     Dates: start: 200411

REACTIONS (2)
  - Diverticulitis [None]
  - Back pain [None]
